FAERS Safety Report 5181519-5 (Version None)
Quarter: 2006Q4

REPORT INFORMATION
  Report Type: 
  Country: None (occurrence: None)
  Receive Date: 20061220
  Receipt Date: 20060124
  Transmission Date: 20070319
  Serious: No
  Sender: FDA-Public Use
  Company Number: US-GLAXOSMITHKLINE-A0590819A

PATIENT
  Sex: Female

DRUGS (2)
  1. COMMIT [Suspect]
  2. WELLBUTRIN XL [Concomitant]

REACTIONS (8)
  - DIARRHOEA [None]
  - DRY EYE [None]
  - DRY MOUTH [None]
  - DRY SKIN [None]
  - DYSPNOEA [None]
  - FREQUENT BOWEL MOVEMENTS [None]
  - NONSPECIFIC REACTION [None]
  - TREMOR [None]
